FAERS Safety Report 10741485 (Version 1)
Quarter: 2015Q1

REPORT INFORMATION
  Report Type: Spontaneous
  Country: US (occurrence: None)
  Receive Date: 20150123
  Receipt Date: 20150123
  Transmission Date: 20150721
  Serious: No
  Sender: FDA-Public Use
  Company Number: None

PATIENT
  Age: 63 Year
  Sex: Female
  Weight: 49 kg

DRUGS (1)
  1. RITUXIMAB [Suspect]
     Active Substance: RITUXIMAB
     Indication: OPTIC NEURITIS
     Dosage: 550 MG  ONCE  IV INFUSION
     Dates: start: 20140922

REACTIONS (3)
  - Dyspnoea [None]
  - Heart rate increased [None]
  - Wheezing [None]

NARRATIVE: CASE EVENT DATE: 20140922
